FAERS Safety Report 9833576 (Version 1)
Quarter: 2014Q1

REPORT INFORMATION
  Report Type: Spontaneous
  Country: DE (occurrence: DE)
  Receive Date: 20140122
  Receipt Date: 20140122
  Transmission Date: 20141002
  Serious: Yes (Hospitalization)
  Sender: FDA-Public Use
  Company Number: DE-BIOGENIDEC-2014BI005118

PATIENT
  Age: 52 Year
  Sex: Female
  Weight: 71 kg

DRUGS (6)
  1. AVONEX [Suspect]
     Indication: MULTIPLE SCLEROSIS
     Route: 030
     Dates: start: 20090612
  2. IBU [Concomitant]
     Indication: PROPHYLAXIS
  3. PARACETAMOL [Concomitant]
     Indication: PROPHYLAXIS
  4. KEPPRA [Concomitant]
     Indication: EPILEPSY
     Dates: start: 2008
  5. L-THYROXIN [Concomitant]
     Indication: HYPOTHYROIDISM
     Dates: start: 2010
  6. OPIPRAMOL [Concomitant]
     Indication: DEPRESSION
     Dates: start: 2009

REACTIONS (2)
  - Infected bites [Recovered/Resolved with Sequelae]
  - Animal bite [Recovered/Resolved]
